FAERS Safety Report 4544062-X (Version None)
Quarter: 2005Q1

REPORT INFORMATION
  Report Type: 
  Country: None (occurrence: None)
  Receive Date: 20050104
  Receipt Date: 20041202
  Transmission Date: 20050727
  Serious: Yes (Life-Threatening, Disabling)
  Sender: FDA-Public Use
  Company Number: US-MERCK-0412USA00432

PATIENT
  Age: 10 Year
  Sex: Male

DRUGS (2)
  1. VIOXX [Suspect]
     Indication: JUVENILE ARTHRITIS
     Route: 048
     Dates: start: 20040101, end: 20040101
  2. [THERAPY UNSPECIFIED] [Concomitant]
     Route: 065

REACTIONS (4)
  - DIZZINESS [None]
  - SYNCOPE [None]
  - TACHYCARDIA [None]
  - VOMITING [None]
